FAERS Safety Report 8836133 (Version 1)
Quarter: 2012Q4

REPORT INFORMATION
  Report Type: 
  Country: RU (occurrence: RU)
  Receive Date: 20121011
  Receipt Date: 20121011
  Transmission Date: 20130627
  Serious: Yes (Other)
  Sender: FDA-Public Use
  Company Number: RU-SANOFI-AVENTIS-2012SA073073

PATIENT
  Age: 80 Year
  Sex: Female

DRUGS (8)
  1. ACETYLSALICYLIC ACLOPIDOGREL BISULFATE [Suspect]
     Indication: THROMBOSIS PROPHYLAXIS
     Dosage: Dose:1 unit(s)
     Route: 048
     Dates: start: 201205, end: 201207
  2. ACETYLSALICYLIC ACLOPIDOGREL BISULFATE [Suspect]
     Indication: THROMBOSIS PROPHYLAXIS
     Dosage: Dose:1 unit(s)
     Route: 048
     Dates: start: 20120803, end: 201209
  3. PLAVIX [Suspect]
     Indication: THROMBOSIS PROPHYLAXIS
     Dosage: Dose:1 unit(s)
     Route: 048
     Dates: start: 201209
  4. PLAVIX [Suspect]
     Indication: ACUTE MYOCARDIAL INFARCTION
     Dosage: Dose:1 unit(s)
     Route: 048
     Dates: start: 201209
  5. DIROTON [Concomitant]
     Indication: DRUG USE FOR UNKNOWN INDICATION
     Route: 048
  6. SPIRONOLACTONE [Concomitant]
     Indication: DRUG USE FOR UNKNOWN INDICATION
     Route: 048
  7. CONCOR [Concomitant]
     Indication: DRUG USE FOR UNKNOWN INDICATION
     Route: 048
  8. AMLODIPINE [Concomitant]
     Indication: DRUG USE FOR UNKNOWN INDICATION
     Route: 048

REACTIONS (2)
  - Erysipelas [Recovered/Resolved]
  - Contusion [Recovered/Resolved]
